FAERS Safety Report 5773863-5 (Version None)
Quarter: 2008Q2

REPORT INFORMATION
  Report Type: 
  Country: None (occurrence: None)
  Receive Date: 20080616
  Receipt Date: 20080606
  Transmission Date: 20081010
  Serious: Yes (Congenital Anomaly)
  Sender: FDA-Public Use
  Company Number: A0685057A

PATIENT
  Sex: Male
  Weight: 3.4 kg

DRUGS (17)
  1. PAXIL [Suspect]
     Indication: STRESS
     Dosage: 20MG PER DAY
     Dates: start: 20040101, end: 20040401
  2. PROMETRIUM [Concomitant]
  3. VITAMIN TAB [Concomitant]
  4. ATENOLOL [Concomitant]
  5. FOLIC ACID [Concomitant]
  6. GLYBURIDE [Concomitant]
  7. CALCIUM [Concomitant]
  8. MAGNESIUM [Concomitant]
  9. ASCORBIC ACID [Concomitant]
  10. MULTIDOPHILUS [Concomitant]
  11. VITAMIN B6 [Concomitant]
  12. FOLIC ACID [Concomitant]
  13. CRANBERRY [Concomitant]
  14. AMPICILLIN [Concomitant]
  15. TUBERCULOSIS VACCINE [Concomitant]
     Indication: PROPHYLAXIS
     Dates: start: 20040412, end: 20040412
  16. ASPIRIN [Concomitant]
  17. LIBRAX [Concomitant]
     Dates: start: 20040331

REACTIONS (10)
  - ASTHMA [None]
  - ATRIAL SEPTAL DEFECT [None]
  - ATTENTION DEFICIT/HYPERACTIVITY DISORDER [None]
  - DRUG EXPOSURE DURING PREGNANCY [None]
  - FOETAL HEART RATE ABNORMAL [None]
  - LUNG INJURY [None]
  - PATENT DUCTUS ARTERIOSUS [None]
  - PREMATURE BABY [None]
  - TRAUMATIC BRAIN INJURY [None]
  - VENTRICULAR SEPTAL DEFECT [None]
